FAERS Safety Report 8186948-3 (Version None)
Quarter: 2012Q1

REPORT INFORMATION
  Report Type: 
  Country: None (occurrence: None)
  Receive Date: 20120306
  Receipt Date: 20120224
  Transmission Date: 20120608
  Serious: Yes (Other)
  Sender: FDA-Public Use
  Company Number: AU-SANOFI-AVENTIS-2012SA012158

PATIENT
  Age: 64 Year
  Sex: Female

DRUGS (11)
  1. PREDNISOLONE [Suspect]
     Indication: ARTHRITIS
     Route: 065
     Dates: start: 20111028
  2. ACETYLSALICYLIC ACID SRT [Concomitant]
  3. LEFLUNOMIDE [Suspect]
     Indication: ARTHRITIS
     Route: 065
     Dates: start: 20111127
  4. ANTIDEPRESSANTS [Suspect]
     Indication: DEPRESSION
     Route: 048
     Dates: start: 20111026, end: 20120123
  5. STELAZINE [Concomitant]
     Dates: start: 19840101
  6. VENLAFAXINE [Concomitant]
  7. ACETAMINOPHEN [Concomitant]
  8. VITAMIN D [Concomitant]
  9. SPIRONOLACTONE [Suspect]
     Route: 065
     Dates: start: 20120101
  10. CLONAZEPAM [Concomitant]
  11. ISOPTIN [Concomitant]

REACTIONS (19)
  - MALAISE [None]
  - PALPITATIONS [None]
  - IMPAIRED DRIVING ABILITY [None]
  - NAUSEA [None]
  - DIARRHOEA [None]
  - VISION BLURRED [None]
  - DECREASED APPETITE [None]
  - MYALGIA [None]
  - ARTHRITIS [None]
  - DIZZINESS [None]
  - HYPERHIDROSIS [None]
  - STRESS [None]
  - DYSGEUSIA [None]
  - VOMITING [None]
  - RASH [None]
  - FLUSHING [None]
  - HALLUCINATION, VISUAL [None]
  - ARTHRALGIA [None]
  - BONE PAIN [None]
